FAERS Safety Report 12841739 (Version 2)
Quarter: 2016Q4

REPORT INFORMATION
  Report Type: Spontaneous
  Country: CZ (occurrence: CZ)
  Receive Date: 20161012
  Receipt Date: 20161020
  Transmission Date: 20170207
  Serious: Yes (Other)
  Sender: FDA-Public Use
  Company Number: CZ-SA-2016SA183569

PATIENT
  Age: 35 Year
  Sex: Female

DRUGS (1)
  1. ALEMTUZUMAB [Suspect]
     Active Substance: ALEMTUZUMAB
     Indication: RELAPSING-REMITTING MULTIPLE SCLEROSIS
     Route: 065
     Dates: start: 201511

REACTIONS (4)
  - Paraparesis [Recovering/Resolving]
  - Gait disturbance [Recovering/Resolving]
  - Urticaria [Unknown]
  - Acute motor axonal neuropathy [Recovering/Resolving]

NARRATIVE: CASE EVENT DATE: 201511
